FAERS Safety Report 11846360 (Version 2)
Quarter: 2015Q4

REPORT INFORMATION
  Report Type: Report from Study
  Country: US (occurrence: US)
  Receive Date: 20151217
  Receipt Date: 20151221
  Transmission Date: 20160305
  Serious: Yes (Hospitalization, Other)
  Sender: FDA-Public Use
  Company Number: US-GILEAD-2015-0186245

PATIENT
  Age: 84 Year
  Sex: Male

DRUGS (1)
  1. RANOLAZINE [Suspect]
     Active Substance: RANOLAZINE
     Indication: ANGINA PECTORIS
     Dosage: 1000 MG, UNK
     Route: 048

REACTIONS (9)
  - Faeces discoloured [Unknown]
  - Weight decreased [Unknown]
  - Feeding disorder [Unknown]
  - Staphylococcal infection [Unknown]
  - Unevaluable event [Unknown]
  - Bone marrow transplant [Unknown]
  - Coronary arterial stent insertion [Unknown]
  - Mycobacterial infection [Unknown]
  - Pain [Unknown]

NARRATIVE: CASE EVENT DATE: 201412
